FAERS Safety Report 5068159-3 (Version None)
Quarter: 2006Q3

REPORT INFORMATION
  Report Type: 
  Country: None (occurrence: None)
  Receive Date: 20060731
  Receipt Date: 20060717
  Transmission Date: 20061208
  Serious: Yes (Other)
  Sender: FDA-Public Use
  Company Number: US017253

PATIENT
  Sex: Female
  Weight: 54.4316 kg

DRUGS (5)
  1. ACTIQ [Suspect]
     Indication: MIGRAINE
     Dosage: 1600 UG 15 UNITS PER MONTH BUCCAL
     Route: 002
     Dates: end: 20060101
  2. DURAGESIC-100 [Concomitant]
  3. DIAZEPAM [Concomitant]
  4. IBUPROFEN [Concomitant]
  5. ROBAXIN [Concomitant]

REACTIONS (3)
  - CONVULSION [None]
  - DRUG WITHDRAWAL CONVULSIONS [None]
  - OVERDOSE [None]
